FAERS Safety Report 13299742 (Version 6)
Quarter: 2017Q2

REPORT INFORMATION
  Report Type: Spontaneous
  Country: JP (occurrence: JP)
  Receive Date: 20170306
  Receipt Date: 20170403
  Transmission Date: 20170830
  Serious: Yes (Death, Other)
  Sender: FDA-Public Use
  Company Number: JP-009507513-1702JPN002109J

PATIENT
  Age: 74 Year
  Sex: Female
  Weight: 56 kg

DRUGS (10)
  1. ERELSA TABLETS 50MG [Suspect]
     Active Substance: ELBASVIR
     Indication: HEPATIC CIRRHOSIS
     Dosage: 50 MG, QD
     Route: 048
     Dates: start: 20170106
  2. FUROSEMIDE. [Suspect]
     Active Substance: FUROSEMIDE
     Indication: HYPERTENSION
     Dosage: 20 MG, QD
     Route: 048
     Dates: end: 20170222
  3. RABEPRAZOLE SODIUM. [Suspect]
     Active Substance: RABEPRAZOLE SODIUM
     Indication: GASTROOESOPHAGEAL REFLUX DISEASE
     Dosage: 10 MG, QD
     Route: 048
     Dates: end: 20170222
  4. NOVORAPID [Suspect]
     Active Substance: INSULIN ASPART
     Indication: TYPE 2 DIABETES MELLITUS
     Dosage: UNK UNK, BID
     Route: 058
     Dates: end: 20170222
  5. AIMIX [Suspect]
     Active Substance: AMLODIPINE BESYLATE\IRBESARTAN
     Indication: HYPERTENSION
     Dosage: 1 DF, QD
     Route: 048
     Dates: end: 20170222
  6. BAYASPIRIN [Suspect]
     Active Substance: ASPIRIN
     Indication: ANGINA PECTORIS
     Dosage: 100 MG, QD
     Route: 048
     Dates: end: 20170222
  7. URSO [Suspect]
     Active Substance: URSODIOL
     Indication: HEPATIC CIRRHOSIS
     Dosage: 100 MG, TID
     Route: 048
     Dates: end: 20170222
  8. PURSENNID (SENNOSIDES) [Suspect]
     Active Substance: SENNOSIDES A AND B
     Indication: CONSTIPATION
     Dosage: 20 MG, QD
     Route: 048
     Dates: end: 20170222
  9. GRAZYNA TABLETS 50MG [Suspect]
     Active Substance: GRAZOPREVIR
     Indication: HEPATIC CIRRHOSIS
     Dosage: 100 MG, QD
     Route: 048
     Dates: start: 20170106
  10. TALION OD [Suspect]
     Active Substance: BEPOTASTINE BESILATE
     Indication: URTICARIA
     Dosage: 10 MG, QD
     Route: 048
     Dates: end: 20170222

REACTIONS (1)
  - Drowning [Fatal]

NARRATIVE: CASE EVENT DATE: 20170222
